FAERS Safety Report 9885525 (Version 1)
Quarter: 2014Q1

REPORT INFORMATION
  Report Type: Spontaneous
  Country: FR (occurrence: FR)
  Receive Date: 20140210
  Receipt Date: 20140210
  Transmission Date: 20141002
  Serious: Yes (Other)
  Sender: FDA-Public Use
  Company Number: FR-PFIZER INC-2014032735

PATIENT
  Age: 79 Year
  Sex: Female
  Weight: 70 kg

DRUGS (8)
  1. TAHOR [Suspect]
     Indication: HYPERCHOLESTEROLAEMIA
     Dosage: 20 MG, DAILY
     Route: 048
     Dates: end: 20131219
  2. AMLOR [Concomitant]
     Indication: HYPERTENSION
     Dosage: 5 MG, DAILY
  3. EUPRESSYL [Concomitant]
     Indication: HYPERTENSION
     Dosage: 30 MG, 2X/DAY
  4. ALTIZIDE W/SPIRONOLACTONE [Concomitant]
     Indication: HYPERTENSION
     Dosage: 1 DF, DAILY
     Dates: end: 20131113
  5. LODOZ [Concomitant]
     Indication: HYPERTENSION
     Dosage: 1 DF (10 MG/6.25 MG), DAILY
     Dates: end: 20131113
  6. NOVONORM [Concomitant]
     Indication: TYPE 2 DIABETES MELLITUS
     Dosage: 1 MG, 3X/DAY
  7. GLIVEC [Concomitant]
     Dosage: 400 MG, DAILY
     Dates: start: 20131024, end: 20131112
  8. GLIVEC [Concomitant]
     Dosage: UNK
     Dates: start: 20131211

REACTIONS (1)
  - Hypocholesterolaemia [Not Recovered/Not Resolved]
